FAERS Safety Report 8113048-0 (Version None)
Quarter: 2012Q1

REPORT INFORMATION
  Report Type: 
  Country: None (occurrence: None)
  Receive Date: 20120203
  Receipt Date: 20120131
  Transmission Date: 20120608
  Serious: Yes (Hospitalization)
  Sender: FDA-Public Use
  Company Number: US-GLAXOSMITHKLINE-A0915618A

PATIENT
  Age: 69 Year
  Sex: Female

DRUGS (1)
  1. AVANDIA [Suspect]
     Indication: DIABETES MELLITUS
     Dosage: 4MG PER DAY
     Route: 048
     Dates: start: 20000501, end: 20071001

REACTIONS (10)
  - CORONARY ARTERY DISEASE [None]
  - ATRIAL FIBRILLATION [None]
  - CARDIAC FAILURE CONGESTIVE [None]
  - PAIN [None]
  - HYPERTENSION [None]
  - HYPERLIPIDAEMIA [None]
  - SLEEP APNOEA SYNDROME [None]
  - CARDIAC PACEMAKER INSERTION [None]
  - HYPERTROPHIC CARDIOMYOPATHY [None]
  - DYSPNOEA [None]
